FAERS Safety Report 23023501 (Version 2)
Quarter: 2024Q2

REPORT INFORMATION
  Report Type: Spontaneous
  Country: CA (occurrence: CA)
  Receive Date: 20231003
  Receipt Date: 20240503
  Transmission Date: 20240717
  Serious: Yes (Other)
  Sender: FDA-Public Use
  Company Number: CA-BAUSCH-BL-2023-014478

PATIENT

DRUGS (3)
  1. MESTINON [Suspect]
     Active Substance: PYRIDOSTIGMINE BROMIDE
     Indication: Myasthenia gravis
     Route: 065
  2. TRUXIMA [Suspect]
     Active Substance: RITUXIMAB-ABBS
     Indication: Myasthenia gravis
     Dosage: SOLUTION INTRAVENOUS
     Route: 042
  3. TRUXIMA [Suspect]
     Active Substance: RITUXIMAB-ABBS
     Dosage: SOLUTION INTRAVENOUS
     Route: 042

REACTIONS (3)
  - Myasthenia gravis [Unknown]
  - Off label use [Unknown]
  - Therapy partial responder [Unknown]
